FAERS Safety Report 24189925 (Version 2)
Quarter: 2024Q3

REPORT INFORMATION
  Report Type: Spontaneous
  Country: US (occurrence: US)
  Receive Date: 20240808
  Receipt Date: 20240821
  Transmission Date: 20241016
  Serious: Yes (Other)
  Sender: BIOVITRUM
  Company Number: US-BIOVITRUM-2024-US-010706

PATIENT
  Age: 71 Year
  Sex: Male

DRUGS (1)
  1. VONJO [Suspect]
     Active Substance: PACRITINIB
     Indication: Chronic myelomonocytic leukaemia
     Dosage: TAKE 2 CAPSULES BY MOUTH TWICE DAILY (ONE CAPSULE IN THE MORNING AND ONE AT NIGHT)
     Route: 048
     Dates: start: 20240725

REACTIONS (6)
  - Seizure [Unknown]
  - Off label use [Recovered/Resolved]
  - Brain fog [Unknown]
  - Diarrhoea [Unknown]
  - Platelet count increased [Unknown]
  - Adverse drug reaction [Unknown]

NARRATIVE: CASE EVENT DATE: 20240725
